FAERS Safety Report 8463824-X (Version None)
Quarter: 2012Q2

REPORT INFORMATION
  Report Type: 
  Country: None (occurrence: None)
  Receive Date: 20120625
  Receipt Date: 20120615
  Transmission Date: 20120825
  Serious: Yes (Hospitalization)
  Sender: FDA-Public Use
  Company Number: US-ASTRAZENECA-2012SE40282

PATIENT
  Age: 55 Year
  Sex: Female
  Weight: 90.7 kg

DRUGS (5)
  1. LEVOXYL [Concomitant]
     Indication: THYROID DISORDER
  2. ALBUTEROL SULFATE AUTOHALER [Concomitant]
  3. SYMBICORT [Suspect]
     Indication: FUNGAL INFECTION
     Dosage: 160/4.5, TWO TIMES A DAY
     Route: 055
  4. SYMBICORT [Suspect]
     Indication: PULMONARY OEDEMA
     Dosage: 160/4.5, TWO TIMES A DAY
     Route: 055
  5. DIOVAN [Concomitant]

REACTIONS (4)
  - PULMONARY OEDEMA [None]
  - OFF LABEL USE [None]
  - DRUG INEFFECTIVE FOR UNAPPROVED INDICATION [None]
  - FUNGAL INFECTION [None]
